FAERS Safety Report 7263718-1 (Version None)
Quarter: 2011Q1

REPORT INFORMATION
  Report Type: 
  Country: None (occurrence: None)
  Receive Date: 20110130
  Receipt Date: 20101029
  Transmission Date: 20110831
  Serious: No
  Sender: FDA-Public Use
  Company Number: US-ABBOTT-10P-163-0682319-00

PATIENT
  Sex: Female
  Weight: 74.002 kg

DRUGS (13)
  1. ASTELIN [Concomitant]
     Indication: HYPERSENSITIVITY
     Route: 045
  2. MULTIVITAMIN [Concomitant]
     Indication: PRODUCT USED FOR UNKNOWN INDICATION
  3. VSL #3 [Concomitant]
     Indication: COLITIS ULCERATIVE
  4. LEVOXYL [Concomitant]
     Indication: HYPOTHYROIDISM
  5. FISH OIL [Concomitant]
     Indication: PRODUCT USED FOR UNKNOWN INDICATION
  6. HUMIRA [Suspect]
     Indication: COLITIS ULCERATIVE
     Dates: start: 20091201, end: 20101012
  7. HUMIRA [Suspect]
     Indication: ARTHRITIS
  8. CALCIUM W/VITAMIN D [Concomitant]
     Indication: PRODUCT USED FOR UNKNOWN INDICATION
  9. VITAMIN D [Concomitant]
     Indication: PRODUCT USED FOR UNKNOWN INDICATION
  10. FLOVENT [Concomitant]
     Indication: ASTHMA
     Route: 055
  11. CLARITIN [Concomitant]
     Indication: HYPERSENSITIVITY
  12. ZYRTEC [Concomitant]
     Indication: HYPERSENSITIVITY
  13. PRILOSEC [Concomitant]
     Indication: DYSPEPSIA

REACTIONS (5)
  - PYREXIA [None]
  - RHINORRHOEA [None]
  - COUGH [None]
  - OROPHARYNGEAL PAIN [None]
  - FATIGUE [None]
